FAERS Safety Report 18036177 (Version 3)
Quarter: 2020Q3

REPORT INFORMATION
  Report Type: Spontaneous
  Country: US (occurrence: US)
  Receive Date: 20200717
  Receipt Date: 20200909
  Transmission Date: 20201103
  Serious: No
  Sender: FDA-Public Use
  Company Number: US-BIOGEN-2020BI00899069

PATIENT
  Sex: Female

DRUGS (1)
  1. TYSABRI [Suspect]
     Active Substance: NATALIZUMAB
     Indication: MULTIPLE SCLEROSIS
     Route: 065
     Dates: start: 20150715

REACTIONS (4)
  - Anger [Unknown]
  - Cerebral disorder [Not Recovered/Not Resolved]
  - Memory impairment [Unknown]
  - Pruritus [Not Recovered/Not Resolved]
